FAERS Safety Report 8241887-4 (Version None)
Quarter: 2012Q1

REPORT INFORMATION
  Report Type: 
  Country: None (occurrence: None)
  Receive Date: 20120328
  Receipt Date: 20120319
  Transmission Date: 20120608
  Serious: Yes (Death, Hospitalization)
  Sender: FDA-Public Use
  Company Number: US-ACTELION-A-US2012-62551

PATIENT

DRUGS (7)
  1. OXYGEN [Concomitant]
  2. EPOPROSTENOL SODIUM [Suspect]
     Indication: PULMONARY ARTERIAL HYPERTENSION
     Dosage: 36 NG/KG, PER MIN
     Route: 042
     Dates: start: 20120204, end: 20120319
  3. COUMADIN [Concomitant]
  4. SILDENAFIL [Concomitant]
  5. CYMBALTA [Concomitant]
  6. EPOPROSTENOL SODIUM [Suspect]
     Dosage: 39.5 NG/KG, PER MIN
     Route: 042
  7. TRACLEER [Concomitant]
     Indication: PULMONARY ARTERIAL HYPERTENSION
     Dosage: UNK
     Route: 048
     Dates: start: 20081101

REACTIONS (4)
  - GENERAL PHYSICAL HEALTH DETERIORATION [None]
  - DELUSION [None]
  - RENAL IMPAIRMENT [None]
  - HALLUCINATION [None]
